FAERS Safety Report 5108408-6 (Version None)
Quarter: 2006Q3

REPORT INFORMATION
  Report Type: 
  Country: None (occurrence: None)
  Receive Date: 20060915
  Receipt Date: 20060901
  Transmission Date: 20061208
  Serious: No
  Sender: FDA-Public Use
  Company Number: 2006S1007172

PATIENT
  Age: 72 Year
  Sex: Female

DRUGS (8)
  1. LISINOPRIL [Suspect]
     Indication: HYPERTENSION
     Dosage: 20 MG; QD; PO
     Route: 048
     Dates: start: 20060330
  2. LISINOPRIL [Suspect]
     Indication: HYPERTENSION
     Dates: start: 20030701, end: 20060329
  3. HYDROCHLOROTHIAZDE TAB [Concomitant]
  4. ASPIRIN [Concomitant]
  5. MULTIVIT [Concomitant]
  6. FLAXSED OIL [Concomitant]
  7. CHONDROITAN W/GLUCOSAMINE [Concomitant]
  8. ASCORBIC ACID [Concomitant]

REACTIONS (2)
  - COUGH [None]
  - THROMBOCYTHAEMIA [None]
